FAERS Safety Report 9470390 (Version 1)
Quarter: 2013Q3

REPORT INFORMATION
  Report Type: Spontaneous
  Country: US (occurrence: US)
  Receive Date: 20130822
  Receipt Date: 20130822
  Transmission Date: 20140515
  Serious: No
  Sender: FDA-Public Use
  Company Number: US-SANOFI-AVENTIS-2013SA024462

PATIENT
  Age: 93 Year
  Sex: Female

DRUGS (1)
  1. MULTAQ [Suspect]
     Indication: HEART RATE IRREGULAR
     Route: 048
     Dates: start: 20130214

REACTIONS (3)
  - Insomnia [Not Recovered/Not Resolved]
  - Heart rate decreased [Not Recovered/Not Resolved]
  - Lethargy [Not Recovered/Not Resolved]
